FAERS Safety Report 10699713 (Version 1)
Quarter: 2015Q1

REPORT INFORMATION
  Report Type: Spontaneous
  Country: US (occurrence: US)
  Receive Date: 20150109
  Receipt Date: 20150109
  Transmission Date: 20150721
  Serious: No
  Sender: FDA-Public Use
  Company Number: US-OPTIMER-20140208

PATIENT
  Age: 45 Year
  Sex: Female
  Weight: 56.69 kg

DRUGS (4)
  1. DIAZEPAM. [Concomitant]
     Active Substance: DIAZEPAM
     Dosage: 5 MG, PRN
     Route: 048
  2. FLAGYL [Concomitant]
     Active Substance: METRONIDAZOLE\METRONIDAZOLE HYDROCHLORIDE
     Indication: CLOSTRIDIUM DIFFICILE COLITIS
     Dosage: 500 MG, BID
     Dates: start: 20140702
  3. COPAXONE [Concomitant]
     Active Substance: GLATIRAMER ACETATE
     Indication: MULTIPLE SCLEROSIS
     Dosage: 20 MG/ML, PRN
     Route: 058
  4. DIFICID [Suspect]
     Active Substance: FIDAXOMICIN
     Indication: CLOSTRIDIUM DIFFICILE COLITIS
     Dosage: 200 MG, BID
     Route: 048
     Dates: start: 20140718

REACTIONS (8)
  - Diarrhoea [Not Recovered/Not Resolved]
  - Dizziness [Unknown]
  - Weight decreased [Not Recovered/Not Resolved]
  - Abdominal pain upper [Unknown]
  - Dysgeusia [Unknown]
  - Headache [Unknown]
  - Drug ineffective [Not Recovered/Not Resolved]
  - Off label use [Unknown]

NARRATIVE: CASE EVENT DATE: 20140729
